FAERS Safety Report 8495141 (Version 2)
Quarter: 2013Q1

REPORT INFORMATION
  Report Type: Spontaneous
  Country: US (occurrence: US)
  Receive Date: 20120329
  Receipt Date: 20130314
  Transmission Date: 20140127
  Serious: Yes (Hospitalization, Other)
  Sender: FDA-Public Use
  Company Number: 2012P1009608

PATIENT
  Sex: Male

DRUGS (1)
  1. PHENYTOIN SODIUM EXTENDED CAPSULES USP 100MG [Suspect]
     Dates: start: 2002

REACTIONS (16)
  - Anticonvulsant drug level increased [Recovered/Resolved with Sequelae]
  - Parkinsonian gait [Not Recovered/Not Resolved]
  - Nervous system disorder [Not Recovered/Not Resolved]
  - Nuclear magnetic resonance imaging brain abnormal [Not Recovered/Not Resolved]
  - Balance disorder [Not Recovered/Not Resolved]
  - Motor dysfunction [Not Recovered/Not Resolved]
  - Sleep disorder [Not Recovered/Not Resolved]
  - Metabolic disorder [Unknown]
  - Extrapyramidal disorder [Not Recovered/Not Resolved]
  - Ataxia [Unknown]
  - Parkinson^s disease [Unknown]
  - Tremor [Not Recovered/Not Resolved]
  - Dyskinesia [Not Recovered/Not Resolved]
  - Gait disturbance [Not Recovered/Not Resolved]
  - Activities of daily living impaired [Unknown]
  - Malaise [Unknown]
